FAERS Safety Report 4759841-3 (Version None)
Quarter: 2005Q3

REPORT INFORMATION
  Report Type: 
  Country: None (occurrence: None)
  Receive Date: 20050831
  Receipt Date: 20050831
  Transmission Date: 20060218
  Serious: Yes (Hospitalization)
  Sender: FDA-Public Use
  Company Number: None

PATIENT
  Age: 75 Year
  Sex: Male

DRUGS (3)
  1. AMTRIPTYLINE 100 MG [Suspect]
     Indication: NECK PAIN
     Dosage: 100 MG TID PO
     Route: 048
  2. PERCOCET [Concomitant]
  3. CYCLOBENZAPRINE HCL [Concomitant]

REACTIONS (8)
  - CONFUSIONAL STATE [None]
  - CONSTIPATION [None]
  - DIZZINESS [None]
  - DRY MOUTH [None]
  - DYSARTHRIA [None]
  - DYSURIA [None]
  - GAIT DISTURBANCE [None]
  - MENTAL STATUS CHANGES [None]
